FAERS Safety Report 11462294 (Version 1)
Quarter: 2015Q3

REPORT INFORMATION
  Report Type: Spontaneous
  Country: US (occurrence: US)
  Receive Date: 20150831
  Receipt Date: 20150831
  Transmission Date: 20151125
  Serious: No
  Sender: FDA-Public Use
  Company Number: US-ELI_LILLY_AND_COMPANY-US201010006445

PATIENT
  Sex: Female

DRUGS (6)
  1. OXYCODONE [Concomitant]
     Active Substance: OXYCODONE
  2. IBUPROFEN. [Concomitant]
     Active Substance: IBUPROFEN
  3. LYRICA [Concomitant]
     Active Substance: PREGABALIN
  4. ALEVE [Concomitant]
     Active Substance: NAPROXEN SODIUM
  5. CYMBALTA [Suspect]
     Active Substance: DULOXETINE HYDROCHLORIDE
     Dosage: UNK, UNKNOWN
     Route: 065
  6. TYLENOL [Concomitant]
     Active Substance: ACETAMINOPHEN

REACTIONS (13)
  - Anger [Unknown]
  - Drug ineffective [Unknown]
  - Arthralgia [Unknown]
  - Pain [Unknown]
  - Depressed mood [Unknown]
  - Limb discomfort [Unknown]
  - Insomnia [Unknown]
  - Irritability [Unknown]
  - Hypoaesthesia [Unknown]
  - Restlessness [Unknown]
  - Paraesthesia [Unknown]
  - Mobility decreased [Unknown]
  - Muscle spasms [Unknown]
